APPROVED DRUG PRODUCT: TIMOLOL MALEATE
Active Ingredient: TIMOLOL MALEATE
Strength: EQ 0.5% BASE
Dosage Form/Route: SOLUTION/DROPS;OPHTHALMIC
Application: A078771 | Product #002 | TE Code: AT1
Applicant: MANKIND PHARMA LTD
Approved: Sep 28, 2009 | RLD: No | RS: No | Type: RX